FAERS Safety Report 6928846-6 (Version None)
Quarter: 2010Q3

REPORT INFORMATION
  Report Type: 
  Country: None (occurrence: None)
  Receive Date: 20100817
  Receipt Date: 20100804
  Transmission Date: 20110219
  Serious: Yes (Other)
  Sender: FDA-Public Use
  Company Number: PHHY2010US51892

PATIENT

DRUGS (1)
  1. ZOMETA [Suspect]
     Dosage: UNK

REACTIONS (2)
  - HYPOCALCAEMIA [None]
  - LUNG CANCER METASTATIC [None]
